FAERS Safety Report 13851503 (Version 1)
Quarter: 2017Q3

REPORT INFORMATION
  Report Type: Spontaneous
  Country: JP (occurrence: JP)
  Receive Date: 20170809
  Receipt Date: 20170809
  Transmission Date: 20171127
  Serious: Yes (Other)
  Sender: FDA-Public Use
  Company Number: JP-SA-2017SA143367

PATIENT

DRUGS (1)
  1. CEFOTAXIME [Suspect]
     Active Substance: CEFOTAXIME SODIUM
     Route: 065

REACTIONS (2)
  - Pancreatitis [Unknown]
  - Amylase increased [Unknown]
